FAERS Safety Report 21160218 (Version 1)
Quarter: 2022Q3

REPORT INFORMATION
  Report Type: Spontaneous
  Country: CA (occurrence: CA)
  Receive Date: 20220802
  Receipt Date: 20220802
  Transmission Date: 20221026
  Serious: Yes (Hospitalization, Other)
  Sender: FDA-Public Use
  Company Number: None

PATIENT
  Age: 67 Year
  Sex: Female

DRUGS (1)
  1. METHOTREXATE [Suspect]
     Active Substance: METHOTREXATE
     Indication: Product used for unknown indication
     Route: 058

REACTIONS (4)
  - Arthritis bacterial [Not Recovered/Not Resolved]
  - Cellulitis [Not Recovered/Not Resolved]
  - Product use issue [Unknown]
  - Staphylococcal infection [Not Recovered/Not Resolved]
